FAERS Safety Report 17467284 (Version 1)
Quarter: 2020Q1

REPORT INFORMATION
  Report Type: Spontaneous
  Country: DE (occurrence: DE)
  Receive Date: 20200227
  Receipt Date: 20200227
  Transmission Date: 20200409
  Serious: Yes (Hospitalization, Other)
  Sender: FDA-Public Use
  Company Number: DE-PFIZER INC-2020083497

PATIENT
  Age: 79 Year
  Sex: Female

DRUGS (3)
  1. GLIVEC [Suspect]
     Active Substance: IMATINIB MESYLATE
     Indication: CHRONIC MYELOID LEUKAEMIA
     Dosage: UNK
     Route: 065
     Dates: end: 201911
  2. HUMIRA [Concomitant]
     Active Substance: ADALIMUMAB
     Indication: PSORIATIC ARTHROPATHY
     Dosage: UNK
     Route: 065
     Dates: end: 201907
  3. METHOTREXATE SODIUM. [Suspect]
     Active Substance: METHOTREXATE SODIUM
     Indication: PSORIATIC ARTHROPATHY
     Dosage: UNK
     Route: 065
     Dates: end: 2019

REACTIONS (21)
  - Femur fracture [Unknown]
  - Thoracic vertebral fracture [Unknown]
  - Cardiomegaly [Unknown]
  - General physical health deterioration [Unknown]
  - Renal failure [Unknown]
  - Post herpetic neuralgia [Unknown]
  - Rash [Unknown]
  - Osteoarthritis [Unknown]
  - Mobility decreased [Unknown]
  - Osteoporosis [Unknown]
  - Aortic elongation [Unknown]
  - Overweight [Unknown]
  - Hypertension [Unknown]
  - Musculoskeletal disorder [Unknown]
  - Back pain [Unknown]
  - Hyperuricaemia [Unknown]
  - Arthralgia [Unknown]
  - Lumbar spinal stenosis [Unknown]
  - Chronic hepatitis B [Unknown]
  - Lumbar vertebral fracture [Unknown]
  - Hypercholesterolaemia [Unknown]

NARRATIVE: CASE EVENT DATE: 2017
